FAERS Safety Report 12758340 (Version 1)
Quarter: 2016Q3

REPORT INFORMATION
  Report Type: Spontaneous
  Country: US (occurrence: US)
  Receive Date: 20160919
  Receipt Date: 20160919
  Transmission Date: 20161109
  Serious: No
  Sender: FDA-Public Use
  Company Number: US-GLAXOSMITHKLINE-US2016134667

PATIENT
  Sex: Female

DRUGS (2)
  1. FLONASE [Suspect]
     Active Substance: FLUTICASONE PROPIONATE
     Indication: PRODUCT USED FOR UNKNOWN INDICATION
     Dosage: UNK
  2. CODEINE COUGH SYRUP [Concomitant]
     Active Substance: CODEINE
     Indication: PRODUCT USED FOR UNKNOWN INDICATION
     Dosage: UNK

REACTIONS (8)
  - Cough [Unknown]
  - Ear pain [Unknown]
  - Sinusitis [Unknown]
  - Sputum discoloured [Unknown]
  - Ear discomfort [Unknown]
  - Viral infection [Unknown]
  - Increased viscosity of bronchial secretion [Unknown]
  - Drug ineffective [Unknown]
